FAERS Safety Report 9747202 (Version 2)
Quarter: 2013Q4

REPORT INFORMATION
  Report Type: Spontaneous
  Country: PL (occurrence: PL)
  Receive Date: 20131212
  Receipt Date: 20131218
  Transmission Date: 20140711
  Serious: Yes (Other)
  Sender: FDA-Public Use
  Company Number: PL-ROCHE-1317188

PATIENT
  Age: 67 Year
  Sex: Male

DRUGS (2)
  1. LUCENTIS [Suspect]
     Indication: PRODUCT USED FOR UNKNOWN INDICATION
     Route: 050
  2. OZURDEX [Concomitant]
     Route: 050

REACTIONS (5)
  - Macular oedema [Unknown]
  - Disease recurrence [Unknown]
  - Retinal cyst [Unknown]
  - Visual acuity reduced [Unknown]
  - Drug ineffective [Unknown]
